FAERS Safety Report 13790946 (Version 2)
Quarter: 2017Q3

REPORT INFORMATION
  Report Type: Report from Study
  Country: US (occurrence: US)
  Receive Date: 20170725
  Receipt Date: 20170828
  Transmission Date: 20171127
  Serious: No
  Sender: FDA-Public Use
  Company Number: US-GILEAD-2017-0278187

PATIENT
  Age: 59 Year
  Sex: Male
  Weight: 67.12 kg

DRUGS (3)
  1. LASIX [Concomitant]
     Active Substance: FUROSEMIDE
  2. LEDIPASVIR/SOFOSBUVIR [Suspect]
     Active Substance: LEDIPASVIR\SOFOSBUVIR
     Indication: CHRONIC HEPATITIS C
     Dosage: 1 DF, UNK
     Route: 048
     Dates: start: 20170602, end: 20170619
  3. ALDACTONE [Concomitant]
     Active Substance: SPIRONOLACTONE

REACTIONS (8)
  - Cough [Not Recovered/Not Resolved]
  - Palpitations [Unknown]
  - Cardiac flutter [Unknown]
  - Dyspepsia [Not Recovered/Not Resolved]
  - Asthenia [Unknown]
  - Disorientation [Unknown]
  - Insomnia [Unknown]
  - Headache [Not Recovered/Not Resolved]

NARRATIVE: CASE EVENT DATE: 2017
